FAERS Safety Report 21206285 (Version 5)
Quarter: 2023Q1

REPORT INFORMATION
  Report Type: Spontaneous
  Country: JP (occurrence: JP)
  Receive Date: 20220812
  Receipt Date: 20230119
  Transmission Date: 20230417
  Serious: Yes (Hospitalization, Other)
  Sender: FDA-Public Use
  Company Number: JP-CHUGAI-2022030711

PATIENT
  Age: 83 Year
  Sex: Male
  Weight: 47.9 kg

DRUGS (13)
  1. TECENTRIQ [Suspect]
     Active Substance: ATEZOLIZUMAB
     Indication: Hepatocellular carcinoma
     Dosage: 1200 MILLIGRAM, ONCE/3WEEKS
     Route: 041
     Dates: start: 20220622, end: 20220712
  2. AVASTIN [Suspect]
     Active Substance: BEVACIZUMAB
     Indication: Hepatocellular carcinoma
     Dosage: 848 MILLIGRAM, ONCE/3WEEKS
     Route: 041
     Dates: start: 20220622, end: 20220712
  3. LICKLE [Concomitant]
     Active Substance: ISOLEUCINE\LEUCINE\VALINE
     Dosage: 4.74 MILLIGRAM, TID
     Route: 048
     Dates: start: 20220624
  4. REBAMIPIDE [Concomitant]
     Active Substance: REBAMIPIDE
     Dosage: 100 MILLIGRAM, PRN
     Route: 048
     Dates: start: 20220613, end: 20220731
  5. LOXOPROFEN [Concomitant]
     Active Substance: LOXOPROFEN
     Dosage: 60 MILLIGRAM, PRN
     Route: 048
     Dates: start: 20220613, end: 20220731
  6. BETAMETHASONE\CALCIPOTRIENE [Concomitant]
     Active Substance: BETAMETHASONE\CALCIPOTRIENE
     Indication: Psoriasis
     Dosage: UNK, QD
     Route: 061
     Dates: start: 20220531, end: 20220731
  7. BIO-THREE [Concomitant]
     Active Substance: HERBALS
     Dosage: UNK, TID
     Route: 048
     Dates: start: 20220719, end: 20220731
  8. EPINASTINE HYDROCHLORIDE [Concomitant]
     Active Substance: EPINASTINE HYDROCHLORIDE
     Dosage: 20 MILLIGRAM, QD
     Route: 048
     Dates: start: 20220711
  9. BETAMETHASONE BUTYRATE PROPIONATE [Concomitant]
     Active Substance: BETAMETHASONE BUTYRATE PROPIONATE
     Dosage: UNK, QD
     Route: 061
     Dates: start: 20220711, end: 20220731
  10. AMLODIPINE BESYLATE [Concomitant]
     Active Substance: AMLODIPINE BESYLATE
     Dosage: 2.5 MILLIGRAM, QD
     Route: 048
     Dates: end: 20220814
  11. CANDESARTAN CILEXETIL [Concomitant]
     Active Substance: CANDESARTAN CILEXETIL
     Dosage: 2 MILLIGRAM, QD
     Route: 048
     Dates: end: 20220814
  12. SITAGLIPTIN [Concomitant]
     Active Substance: SITAGLIPTIN
     Dosage: 25 MILLIGRAM, QD
     Route: 048
  13. NEXIUM [Concomitant]
     Active Substance: ESOMEPRAZOLE MAGNESIUM
     Dosage: 20 MILLIGRAM, QD
     Route: 048

REACTIONS (4)
  - Skin disorder [Recovering/Resolving]
  - Psoriasis [Recovered/Resolved]
  - Decreased appetite [Unknown]
  - Creatinine renal clearance decreased [Recovered/Resolved]

NARRATIVE: CASE EVENT DATE: 20220622
